FAERS Safety Report 7722505-8 (Version None)
Quarter: 2011Q3

REPORT INFORMATION
  Report Type: 
  Country: None (occurrence: None)
  Receive Date: 20110831
  Receipt Date: 20110819
  Transmission Date: 20111222
  Serious: Yes (Hospitalization)
  Sender: FDA-Public Use
  Company Number: DE-ELI_LILLY_AND_COMPANY-DE201108006300

PATIENT
  Age: 73 Year
  Sex: Female

DRUGS (6)
  1. IBUPROFEN [Concomitant]
  2. HUMIRA [Concomitant]
  3. CALCIUM CARBONATE [Concomitant]
  4. PREDNISOLONE [Concomitant]
     Dosage: UNK
     Dates: start: 20050101
  5. DEKRISTOL [Concomitant]
  6. FORTEO [Suspect]
     Indication: OSTEOPOROSIS
     Dosage: UNK, OTHER
     Route: 058
     Dates: start: 20100517

REACTIONS (3)
  - ANAEMIA [None]
  - DRUG DOSE OMISSION [None]
  - RHEUMATIC FEVER [None]
